FAERS Safety Report 24008591 (Version 1)
Quarter: 2024Q2

REPORT INFORMATION
  Report Type: Spontaneous
  Country: SG (occurrence: SG)
  Receive Date: 20240625
  Receipt Date: 20240625
  Transmission Date: 20240716
  Serious: Yes (Other)
  Sender: FDA-Public Use
  Company Number: SG-CHEPLA-2024007772

PATIENT
  Age: 39 Year
  Sex: Male

DRUGS (5)
  1. GANCICLOVIR [Suspect]
     Active Substance: GANCICLOVIR
     Indication: Cytomegalovirus chorioretinitis
     Dosage: 5 MG/KG BD (TWICE A DAY)?DAILY DOSE: 10 MILLIGRAM/KG
     Route: 042
  2. GANCICLOVIR [Suspect]
     Active Substance: GANCICLOVIR
     Indication: Cytomegalovirus chorioretinitis
     Dosage: 2 MG/0.04 ML; ROA: INTRAVITREAL USE
     Route: 031
  3. VALGANCICLOVIR [Suspect]
     Active Substance: VALGANCICLOVIR
     Indication: Cytomegalovirus chorioretinitis
     Dosage: 900 MG BD (TWICE A DAY)?DAILY DOSE: 1800 MILLIGRAM
     Route: 048
  4. VALGANCICLOVIR [Suspect]
     Active Substance: VALGANCICLOVIR
     Indication: Cytomegalovirus chorioretinitis
     Dosage: REDUCED TO 900 MG OM (EVERY MORNING)?DAILY DOSE: 900 MILLI-INTERNATIONAL UNIT
     Route: 048
  5. VALGANCICLOVIR [Suspect]
     Active Substance: VALGANCICLOVIR
     Indication: Cytomegalovirus chorioretinitis
     Dosage: INCREASED FROM 900 MG OM TO BD. ?DAILY DOSE: 1800 MILLIGRAM
     Route: 048

REACTIONS (4)
  - Cytomegalovirus infection reactivation [Recovered/Resolved]
  - Immune recovery uveitis [Recovered/Resolved]
  - Retinal degeneration [Unknown]
  - Off label use [Recovered/Resolved]
